FAERS Safety Report 5123056-X (Version None)
Quarter: 2006Q4

REPORT INFORMATION
  Report Type: 
  Country: None (occurrence: None)
  Receive Date: 20061004
  Receipt Date: 20061004
  Transmission Date: 20070319
  Serious: Yes (Other)
  Sender: FDA-Public Use
  Company Number: None

PATIENT
  Age: 2 Year
  Sex: Female

DRUGS (1)
  1. AMOXICILLIN [Suspect]
     Indication: OTITIS MEDIA
     Dosage: 6ML BID
     Dates: start: 20060911

REACTIONS (2)
  - RASH GENERALISED [None]
  - RASH PRURITIC [None]
